FAERS Safety Report 17584300 (Version 1)
Quarter: 2020Q1

REPORT INFORMATION
  Report Type: Spontaneous
  Country: GB (occurrence: GB)
  Receive Date: 20200326
  Receipt Date: 20200326
  Transmission Date: 20200409
  Serious: Yes (Disabling)
  Sender: FDA-Public Use
  Company Number: GB-ALLERGAN-2012630US

PATIENT
  Sex: Female
  Weight: 109 kg

DRUGS (7)
  1. CITALOPRAM HYDROBROMIDE - BP [Suspect]
     Active Substance: CITALOPRAM HYDROBROMIDE
     Indication: ANXIETY
     Dosage: 20 MG, QD
     Route: 048
     Dates: start: 20191205, end: 20200127
  2. BUPROPION HYDROCHLORIDE. [Concomitant]
     Active Substance: BUPROPION HYDROCHLORIDE
     Indication: PRODUCT USED FOR UNKNOWN INDICATION
     Route: 065
  3. CLONAZEPAM. [Concomitant]
     Active Substance: CLONAZEPAM
     Indication: PRODUCT USED FOR UNKNOWN INDICATION
     Route: 065
  4. OMEPRAZOLE. [Concomitant]
     Active Substance: OMEPRAZOLE
     Indication: PRODUCT USED FOR UNKNOWN INDICATION
     Dosage: UNK
     Route: 065
  5. AZITHROMYCIN ANHYDROUS. [Concomitant]
     Active Substance: AZITHROMYCIN ANHYDROUS
     Indication: PNEUMONIA
     Route: 065
     Dates: start: 20191226
  6. CLARITHROMYCIN RANBAXY [Interacting]
     Active Substance: CLARITHROMYCIN
     Indication: PNEUMONIA
     Dosage: 500 MG
     Route: 048
     Dates: start: 20200120, end: 20200127
  7. ACCORD HEALTHCARE MIRTAZAPINE [Interacting]
     Active Substance: MIRTAZAPINE
     Indication: DEPRESSION
     Dosage: BEFORE BED
     Route: 048
     Dates: start: 20200120

REACTIONS (7)
  - Night sweats [Not Recovered/Not Resolved]
  - Withdrawal syndrome [Unknown]
  - Drug interaction [Unknown]
  - Crying [Not Recovered/Not Resolved]
  - Emotional distress [Not Recovered/Not Resolved]
  - Back pain [Not Recovered/Not Resolved]
  - Heart rate increased [Not Recovered/Not Resolved]

NARRATIVE: CASE EVENT DATE: 20200120
